FAERS Safety Report 15255341 (Version 1)
Quarter: 2018Q3

REPORT INFORMATION
  Report Type: Spontaneous
  Country: US (occurrence: US)
  Receive Date: 20180808
  Receipt Date: 20180808
  Transmission Date: 20181010
  Serious: Yes (Other)
  Sender: FDA-Public Use
  Company Number: US-JNJFOC-20180801173

PATIENT
  Age: 71 Year
  Sex: Female

DRUGS (1)
  1. INFLIXIMAB, RECOMBINANT [Suspect]
     Active Substance: INFLIXIMAB
     Indication: NECROBIOSIS LIPOIDICA DIABETICORUM
     Route: 042

REACTIONS (4)
  - Drug ineffective for unapproved indication [Unknown]
  - Polycythaemia vera [Unknown]
  - Off label use [Unknown]
  - Cardiac failure congestive [Unknown]
